FAERS Safety Report 8905644 (Version 1)
Quarter: 2012Q4

REPORT INFORMATION
  Report Type: Report from Study
  Country: CA (occurrence: CA)
  Receive Date: 20121113
  Receipt Date: 20121113
  Transmission Date: 20130627
  Serious: Yes (Hospitalization)
  Sender: FDA-Public Use
  Company Number: CA-JNJFOC-20121103517

PATIENT
  Age: 53 Year
  Sex: Female
  Weight: 119.2 kg

DRUGS (4)
  1. REMICADE [Suspect]
     Indication: COLITIS ULCERATIVE
     Dosage: loading doses
     Route: 042
     Dates: start: 20121024
  2. PAXIL [Concomitant]
     Route: 048
  3. MELOXICAM [Concomitant]
     Route: 048
  4. WELLBUTRIN [Concomitant]
     Route: 048

REACTIONS (2)
  - Abdominal pain [Recovered/Resolved]
  - Vomiting [Recovered/Resolved]
